FAERS Safety Report 25340121 (Version 1)
Quarter: 2025Q2

REPORT INFORMATION
  Report Type: Report from Study
  Country: US (occurrence: US)
  Receive Date: 20250521
  Receipt Date: 20250521
  Transmission Date: 20250716
  Serious: Yes (Other)
  Sender: CSL BEHRING
  Company Number: US-BEH-2025205108

PATIENT
  Age: 27 Year
  Sex: Female

DRUGS (2)
  1. PRIVIGEN [Suspect]
     Active Substance: HUMAN IMMUNOGLOBULIN G
     Route: 065
  2. PRIVIGEN [Suspect]
     Active Substance: HUMAN IMMUNOGLOBULIN G
     Route: 065
     Dates: start: 2025

REACTIONS (6)
  - Multiple sclerosis [Unknown]
  - Hypersensitivity [Unknown]
  - Pain [Unknown]
  - Chills [Unknown]
  - Illness [Unknown]
  - Decreased immune responsiveness [Unknown]
